FAERS Safety Report 21312791 (Version 1)
Quarter: 2022Q3

REPORT INFORMATION
  Report Type: Spontaneous
  Country: US (occurrence: None)
  Receive Date: 20220908
  Receipt Date: 20220908
  Transmission Date: 20221026
  Serious: No
  Sender: FDA-Public Use
  Company Number: None

PATIENT
  Sex: Female
  Weight: 81 kg

DRUGS (5)
  1. CEQUA [Suspect]
     Active Substance: CYCLOSPORINE
     Indication: Dry eye
     Dosage: FREQUENCY : DAILY;?
     Route: 047
     Dates: start: 20220501
  2. OMEPRAZOLE [Concomitant]
     Active Substance: OMEPRAZOLE
  3. VALSARTAN [Concomitant]
     Active Substance: VALSARTAN
  4. Centrum multivitamin [Concomitant]
  5. VITAMIN D [Concomitant]
     Active Substance: VITAMIN D NOS

REACTIONS (1)
  - Gingivitis [None]
